FAERS Safety Report 4407434-X (Version None)
Quarter: 2004Q3

REPORT INFORMATION
  Report Type: 
  Country: None (occurrence: None)
  Receive Date: 20040726
  Receipt Date: 20040719
  Transmission Date: 20050211
  Serious: Yes (Hospitalization)
  Sender: FDA-Public Use
  Company Number: 200415478US

PATIENT
  Age: 55 Year
  Sex: Female

DRUGS (3)
  1. DIABETA [Suspect]
     Indication: DIABETES MELLITUS NON-INSULIN-DEPENDENT
     Dosage: DOSE: UNK
     Dates: start: 20040601
  2. EFFEXOR [Concomitant]
     Dosage: DOSE: UNK
  3. FLOXIN [Concomitant]
     Dosage: DOSE: UNK

REACTIONS (5)
  - ANKLE FRACTURE [None]
  - BLOOD GLUCOSE INCREASED [None]
  - CONDITION AGGRAVATED [None]
  - FALL [None]
  - VISION BLURRED [None]
